FAERS Safety Report 6814623-3 (Version None)
Quarter: 2010Q3

REPORT INFORMATION
  Report Type: 
  Country: None (occurrence: None)
  Receive Date: 20100702
  Receipt Date: 20100623
  Transmission Date: 20110219
  Serious: Yes (Other)
  Sender: FDA-Public Use
  Company Number: JP-PFIZER INC-2010077954

PATIENT

DRUGS (1)
  1. ZYVOX [Suspect]
     Route: 065

REACTIONS (1)
  - HYPONATRAEMIA [None]
